FAERS Safety Report 23574720 (Version 4)
Quarter: 2024Q2

REPORT INFORMATION
  Report Type: Spontaneous
  Country: TW (occurrence: TW)
  Receive Date: 20240228
  Receipt Date: 20240409
  Transmission Date: 20240716
  Serious: Yes (Life-Threatening, Hospitalization, Other)
  Sender: FDA-Public Use
  Company Number: TW-Accord-409197

PATIENT
  Age: 48 Year
  Sex: Male
  Weight: 74 kg

DRUGS (21)
  1. FLUOROURACIL [Suspect]
     Active Substance: FLUOROURACIL
     Indication: Squamous cell carcinoma of head and neck
     Dosage: ON DAYS 1,2,3,4, 1Q3W
     Route: 042
     Dates: start: 20240131, end: 20240205
  2. CARBOPLATIN [Suspect]
     Active Substance: CARBOPLATIN
     Indication: Squamous cell carcinoma of head and neck
     Dosage: AUC 5, 1Q3W
     Route: 042
     Dates: start: 20240131, end: 20240131
  3. PEMBROLIZUMAB [Concomitant]
     Active Substance: PEMBROLIZUMAB
     Indication: Squamous cell carcinoma of head and neck
     Dosage: 1Q3W
     Route: 042
     Dates: start: 20240131, end: 20240131
  4. PALONOSETRON [Concomitant]
     Active Substance: PALONOSETRON
     Dates: start: 20240131, end: 20240131
  5. APREPITANT [Concomitant]
     Active Substance: APREPITANT
     Dates: start: 20240131, end: 20240202
  6. DEXAMETHASONE PHOSPHATE [Concomitant]
     Active Substance: DEXAMETHASONE PHOSPHATE
     Dates: start: 20240131, end: 20240131
  7. ACETAMINOPHEN [Concomitant]
     Active Substance: ACETAMINOPHEN
     Dates: start: 20240113, end: 20240216
  8. CEFEPIME [Concomitant]
     Active Substance: CEFEPIME HYDROCHLORIDE
     Dates: start: 20240215, end: 20240221
  9. NYSTATIN [Concomitant]
     Active Substance: NYSTATIN
     Dates: start: 20240207
  10. DEXAMETHASONE [Concomitant]
     Active Substance: DEXAMETHASONE
     Dosage: 0.1 %
     Dates: start: 20240207, end: 20240208
  11. DIPHENHYDRAMINE HYDROCHLORIDE [Concomitant]
     Active Substance: DIPHENHYDRAMINE HYDROCHLORIDE
     Dates: start: 20240202, end: 20240202
  12. LEVOCETIRIZINE [Concomitant]
     Active Substance: LEVOCETIRIZINE
     Dates: start: 20240204, end: 20240204
  13. GRAMICIDIN\NEOMYCIN\NYSTATIN [Concomitant]
     Active Substance: GRAMICIDIN\NEOMYCIN\NYSTATIN
     Dates: start: 20240206, end: 20240213
  14. DIETARY SUPPLEMENT\HERBALS\MILK THISTLE [Concomitant]
     Active Substance: MILK THISTLE
     Dates: start: 20240216, end: 20240221
  15. POTASSIUM CHLORIDE [Concomitant]
     Active Substance: POTASSIUM CHLORIDE
     Dates: start: 20240218, end: 20240221
  16. TOPAAL [Concomitant]
     Active Substance: ALGINIC ACID\ALUMINUM HYDROXIDE\MAGNESIUM CARBONATE
     Dates: start: 20240218
  17. PARACETAMOL W/TRAMADOL HYDROCHLORID [Concomitant]
     Dates: start: 20240202, end: 20240220
  18. GRANULOCYTE COLONY-STIMULATING FACTOR NOS [Concomitant]
     Active Substance: GRANULOCYTE COLONY-STIMULATING FACTOR NOS
     Dates: start: 20240215
  19. SODIUM CHLORIDE [Concomitant]
     Active Substance: SODIUM CHLORIDE
     Dates: start: 20240218, end: 20240221
  20. FILGRASTIM [Concomitant]
     Active Substance: FILGRASTIM
     Dates: start: 20240215, end: 20240224
  21. PEMBROLIZUMAB [Concomitant]
     Active Substance: PEMBROLIZUMAB
     Indication: Squamous cell carcinoma of head and neck
     Dosage: 1Q3W
     Route: 042
     Dates: start: 20240229, end: 20240320

REACTIONS (4)
  - Febrile neutropenia [Recovered/Resolved]
  - Aspartate aminotransferase increased [Recovered/Resolved]
  - Alanine aminotransferase increased [Recovered/Resolved]
  - Pancytopenia [Recovered/Resolved]

NARRATIVE: CASE EVENT DATE: 20240215
